FAERS Safety Report 19821020 (Version 1)
Quarter: 2021Q3

REPORT INFORMATION
  Report Type: Spontaneous
  Country: US (occurrence: US)
  Receive Date: 20210912
  Receipt Date: 20210912
  Transmission Date: 20211014
  Serious: No
  Sender: FDA-Public Use
  Company Number: None

PATIENT
  Age: 48 Year
  Sex: Female
  Weight: 95.25 kg

DRUGS (2)
  1. CLARISCAN [Suspect]
     Active Substance: GADOTERATE MEGLUMINE
  2. 3T MRI [Suspect]
     Active Substance: DEVICE

REACTIONS (11)
  - Headache [None]
  - Back pain [None]
  - Bone pain [None]
  - Chromaturia [None]
  - Renal pain [None]
  - Paraesthesia [None]
  - Photopsia [None]
  - Muscle twitching [None]
  - Joint noise [None]
  - Burning sensation [None]
  - Dyskinesia [None]

NARRATIVE: CASE EVENT DATE: 20210825
